FAERS Safety Report 10162729 (Version 4)
Quarter: 2015Q2

REPORT INFORMATION
  Report Type: Spontaneous
  Country: JP (occurrence: JP)
  Receive Date: 20140509
  Receipt Date: 20150422
  Transmission Date: 20150821
  Serious: Yes (Death, Life-Threatening, Hospitalization, Other)
  Sender: FDA-Public Use
  Company Number: JP-PFIZER INC-2014127047

PATIENT
  Age: 79 Year
  Sex: Female
  Weight: 54 kg

DRUGS (1)
  1. SUTENT [Suspect]
     Active Substance: SUNITINIB MALATE
     Indication: RENAL CELL CARCINOMA
     Dosage: 37.5 MG, 1X/DAY
     Route: 048
     Dates: start: 20140419, end: 20140501

REACTIONS (17)
  - Blood pressure decreased [Unknown]
  - Atrioventricular block complete [Recovered/Resolved]
  - Palmar-plantar erythrodysaesthesia syndrome [Unknown]
  - Fall [Unknown]
  - Tumour associated fever [Unknown]
  - Urine output decreased [Unknown]
  - Renal failure [Recovered/Resolved]
  - Liver disorder [Unknown]
  - Depressed level of consciousness [Recovered/Resolved]
  - Bradycardia [Unknown]
  - Disease progression [Fatal]
  - Disseminated intravascular coagulation [Recovered/Resolved]
  - Pyrexia [Unknown]
  - Bacterial infection [Unknown]
  - Renal cell carcinoma [Fatal]
  - Device related infection [Unknown]
  - Basal ganglia infarction [Recovered/Resolved]

NARRATIVE: CASE EVENT DATE: 2014
